FAERS Safety Report 15946596 (Version 3)
Quarter: 2020Q1

REPORT INFORMATION
  Report Type: Report from Study
  Country: CO (occurrence: CO)
  Receive Date: 20190212
  Receipt Date: 20200317
  Transmission Date: 20200409
  Serious: Yes (Hospitalization)
  Sender: FDA-Public Use
  Company Number: CO-ROCHE-2256921

PATIENT
  Sex: Female

DRUGS (3)
  1. TARCEVA [Suspect]
     Active Substance: ERLOTINIB HYDROCHLORIDE
     Indication: PRODUCT USED FOR UNKNOWN INDICATION
     Dosage: PILL
     Route: 048
  2. TRASTUZUMAB. [Suspect]
     Active Substance: TRASTUZUMAB
     Indication: PRODUCT USED FOR UNKNOWN INDICATION
     Route: 065
  3. XELODA [Suspect]
     Active Substance: CAPECITABINE
     Indication: PRODUCT USED FOR UNKNOWN INDICATION
     Dosage: SEVEN PILLS PER DAY
     Route: 048

REACTIONS (8)
  - Dry skin [Unknown]
  - Malaise [Unknown]
  - Immunodeficiency [Unknown]
  - Feeling abnormal [Unknown]
  - Speech disorder [Unknown]
  - Sensitive skin [Unknown]
  - Ill-defined disorder [Unknown]
  - Stomatitis [Unknown]
